FAERS Safety Report 4430693-4 (Version None)
Quarter: 2004Q3

REPORT INFORMATION
  Report Type: 
  Country: None (occurrence: None)
  Receive Date: 20040721
  Receipt Date: 20040227
  Transmission Date: 20050211
  Serious: Yes (Hospitalization)
  Sender: FDA-Public Use
  Company Number: WAES 0403USA00035

PATIENT
  Age: 65 Year
  Sex: Male

DRUGS (1)
  1. VIOXX [Suspect]
     Indication: ARTHRITIS
     Dosage: 12.5 MG/PRN/PO
     Route: 048
     Dates: start: 20031101, end: 20031101

REACTIONS (1)
  - GASTROINTESTINAL HAEMORRHAGE [None]
